FAERS Safety Report 24896876 (Version 1)
Quarter: 2025Q1

REPORT INFORMATION
  Report Type: Spontaneous
  Country: BE (occurrence: BE)
  Receive Date: 20250128
  Receipt Date: 20250128
  Transmission Date: 20250408
  Serious: Yes (Other)
  Sender: GILEAD
  Company Number: BE-GILEAD-2025-0699750

PATIENT
  Age: 64 Year
  Sex: Male

DRUGS (2)
  1. YESCARTA [Suspect]
     Active Substance: AXICABTAGENE CILOLEUCEL
     Indication: T-cell lymphoma
     Route: 065
     Dates: start: 202406
  2. CYCLOPHOSPHAMIDE\FLUDARABINE [Concomitant]
     Active Substance: CYCLOPHOSPHAMIDE\FLUDARABINE

REACTIONS (1)
  - T-cell lymphoma [Unknown]
